FAERS Safety Report 5492819-3 (Version None)
Quarter: 2007Q4

REPORT INFORMATION
  Report Type: 
  Country: None (occurrence: None)
  Receive Date: 20071019
  Receipt Date: 20071016
  Transmission Date: 20080405
  Serious: Yes (Death, Hospitalization)
  Sender: FDA-Public Use
  Company Number: 066-C5013-07100820

PATIENT
  Sex: Male

DRUGS (5)
  1. CC-5013 (LENALIDOMIDE) (CAPSULES) [Suspect]
     Indication: MULTIPLE MYELOMA
     Dosage: 25 MG, DAILY, ORAL
     Route: 048
     Dates: start: 20070701, end: 20070701
  2. BACTRIM [Concomitant]
  3. FUNGOSTATIN (FLUCONAZOLE) [Concomitant]
  4. DIPHOSPHONATES (BISPHOSPHONATES) [Concomitant]
  5. DEXAMETHASONE TAB [Concomitant]

REACTIONS (4)
  - INFECTION [None]
  - PYREXIA [None]
  - RASH [None]
  - VANISHING BILE DUCT SYNDROME [None]
